FAERS Safety Report 5508068-6 (Version None)
Quarter: 2007Q4

REPORT INFORMATION
  Report Type: 
  Country: None (occurrence: None)
  Receive Date: 20071106
  Receipt Date: 20071029
  Transmission Date: 20080405
  Serious: Yes (Other)
  Sender: FDA-Public Use
  Company Number: US-SHR-US-2007-010986

PATIENT
  Age: 44 Year
  Sex: Female
  Weight: 62 kg

DRUGS (1)
  1. MIRENA [Suspect]
     Indication: CONTRACEPTION
     Dosage: 20 A?G/DAY, CONT
     Route: 015
     Dates: start: 20060424, end: 20070503

REACTIONS (7)
  - ALLERGY TO ANIMAL [None]
  - DRUG HYPERSENSITIVITY [None]
  - DYSPNOEA [None]
  - LIMB INJURY [None]
  - SWELLING FACE [None]
  - THROAT TIGHTNESS [None]
  - URTICARIA CHRONIC [None]
